FAERS Safety Report 9356733 (Version 1)
Quarter: 2013Q2

REPORT INFORMATION
  Report Type: Report from Study
  Country: AR (occurrence: AR)
  Receive Date: 20130619
  Receipt Date: 20130619
  Transmission Date: 20140414
  Serious: Yes (Other)
  Sender: FDA-Public Use
  Company Number: PHHY2013AR062480

PATIENT
  Sex: Female

DRUGS (2)
  1. GILENYA [Suspect]
     Indication: MULTIPLE SCLEROSIS
     Dosage: UNK
     Route: 048
     Dates: start: 201204, end: 201207
  2. GILENYA [Suspect]
     Dosage: UNK
     Route: 048
     Dates: start: 201209

REACTIONS (2)
  - Enterocolitis [Recovered/Resolved]
  - White blood cell count decreased [Not Recovered/Not Resolved]
